FAERS Safety Report 18333201 (Version 2)
Quarter: 2022Q1

REPORT INFORMATION
  Report Type: Report from Study
  Country: BE (occurrence: BE)
  Receive Date: 20200930
  Receipt Date: 20220128
  Transmission Date: 20220424
  Serious: Yes (Hospitalization)
  Sender: FDA-Public Use
  Company Number: BE-ABBVIE-20K-013-3408668-00

PATIENT
  Sex: Male
  Weight: 94 kg

DRUGS (9)
  1. CARBIDOPA\LEVODOPA [Suspect]
     Active Substance: CARBIDOPA\LEVODOPA
     Indication: Parkinson^s disease
     Dosage: UNKNOWN DOSAGES
     Route: 050
     Dates: start: 20170118, end: 20181113
  2. CARBIDOPA\LEVODOPA [Suspect]
     Active Substance: CARBIDOPA\LEVODOPA
     Dosage: MD=1ML, CD=3.2ML/HR DURING 16HRS, ED=2ML, ND=2ML/HR DURING 8HRS
     Route: 050
     Dates: start: 20181113, end: 2020
  3. CARBIDOPA\LEVODOPA [Suspect]
     Active Substance: CARBIDOPA\LEVODOPA
     Route: 050
     Dates: start: 20200526, end: 20200625
  4. CARBIDOPA\LEVODOPA [Suspect]
     Active Substance: CARBIDOPA\LEVODOPA
     Dosage: MD=10ML, CD=3.5ML/HR DURING 16HRS, ED=2.5ML, ND=2ML/HR DURING?8HRS
     Route: 050
     Dates: start: 20200625, end: 20200701
  5. CARBIDOPA\LEVODOPA [Suspect]
     Active Substance: CARBIDOPA\LEVODOPA
     Dosage: MD=1.2ML, CD=3.5ML/HR DURING 16HRS, ED=2.5ML; ND=2ML/HR DURING?8HRS
     Route: 050
     Dates: start: 20200701, end: 20200701
  6. CARBIDOPA\LEVODOPA [Suspect]
     Active Substance: CARBIDOPA\LEVODOPA
     Dosage: MD=1.0ML, CD=3.5ML/HR DURING 16HRS, ED=2.5ML, ND=2ML/HR DURING 8HRS
     Route: 050
     Dates: start: 20200701, end: 20200701
  7. CARBIDOPA\LEVODOPA [Suspect]
     Active Substance: CARBIDOPA\LEVODOPA
     Dosage: MD=9ML, CD=3.5ML/HR DURING 16HRS, ED=2.5ML, ND=2ML/HR DURING?8HRS
     Route: 050
     Dates: start: 20200701
  8. BENSERAZIDE HYDROCHLORIDE\LEVODOPA [Concomitant]
     Active Substance: BENSERAZIDE HYDROCHLORIDE\LEVODOPA
     Indication: Parkinson^s disease
     Route: 048
  9. BENSERAZIDE HYDROCHLORIDE\LEVODOPA [Concomitant]
     Active Substance: BENSERAZIDE HYDROCHLORIDE\LEVODOPA

REACTIONS (9)
  - General physical health deterioration [Unknown]
  - Bedridden [Unknown]
  - Mobility decreased [Recovering/Resolving]
  - Mental disorder [Recovering/Resolving]
  - Dementia [Unknown]
  - Delusion [Recovering/Resolving]
  - Aggression [Unknown]
  - Hallucination [Unknown]
  - Therapeutic product effect incomplete [Unknown]
